FAERS Safety Report 12922339 (Version 2)
Quarter: 2017Q1

REPORT INFORMATION
  Report Type: Report from Study
  Country: LT (occurrence: LT)
  Receive Date: 20161108
  Receipt Date: 20170209
  Transmission Date: 20170428
  Serious: Yes (Hospitalization, Other)
  Sender: FDA-Public Use
  Company Number: PHHY2016LT121150

PATIENT
  Age: 64 Year
  Sex: Female
  Weight: 72 kg

DRUGS (1)
  1. TASIGNA [Suspect]
     Active Substance: NILOTINIB
     Indication: CHRONIC MYELOID LEUKAEMIA
     Dosage: 400 MG, BID
     Route: 048
     Dates: start: 20160427, end: 20160829

REACTIONS (10)
  - Anaemia [Recovered/Resolved]
  - Aplastic anaemia [Unknown]
  - Thrombocytopenia [Recovered/Resolved]
  - Neutrophil count decreased [Unknown]
  - Procalcitonin decreased [Unknown]
  - Fatigue [Unknown]
  - Dizziness [Unknown]
  - Lymphocyte count increased [Unknown]
  - Monocyte count decreased [Unknown]
  - Asthenia [Unknown]

NARRATIVE: CASE EVENT DATE: 20160829
